FAERS Safety Report 9602518 (Version 2)
Quarter: 2013Q4

REPORT INFORMATION
  Report Type: Spontaneous
  Country: FR (occurrence: FR)
  Receive Date: 20131007
  Receipt Date: 20131021
  Transmission Date: 20140711
  Serious: Yes (Hospitalization)
  Sender: FDA-Public Use
  Company Number: FR-SA-2013SA096027

PATIENT
  Age: 75 Year
  Sex: Male

DRUGS (12)
  1. RIFADINE [Suspect]
     Indication: ENDOCARDITIS
     Route: 042
     Dates: start: 20130709, end: 20130716
  2. RIFADINE [Suspect]
     Indication: ENDOCARDITIS
     Route: 042
     Dates: start: 20130716
  3. VANCOMYCINE [Suspect]
     Indication: ENDOCARDITIS
     Route: 042
     Dates: start: 20130709, end: 20130716
  4. GENTAMICIN [Suspect]
     Indication: ENDOCARDITIS
     Route: 042
     Dates: start: 20130709, end: 20130709
  5. GENTAMICIN [Suspect]
     Indication: ENDOCARDITIS
     Route: 042
     Dates: start: 20130716, end: 20130726
  6. TAZOCILLINE [Suspect]
     Indication: ENDOCARDITIS
     Dosage: 4G X 4?THERAPY STOP DATE: JUL2013
     Route: 042
     Dates: start: 20130709
  7. PREVISCAN [Concomitant]
  8. ATENOLOL [Concomitant]
  9. KALEROID [Concomitant]
  10. LASILIX [Concomitant]
  11. AMLOR [Concomitant]
  12. GLUCOPHAGE [Concomitant]

REACTIONS (6)
  - Metabolic acidosis [Recovered/Resolved]
  - Hepatocellular injury [Recovered/Resolved]
  - Renal failure acute [Recovering/Resolving]
  - Blood creatinine increased [Not Recovered/Not Resolved]
  - Proteinuria [Not Recovered/Not Resolved]
  - Oliguria [Not Recovered/Not Resolved]
